FAERS Safety Report 24803975 (Version 3)
Quarter: 2025Q1

REPORT INFORMATION
  Report Type: Spontaneous
  Country: FR (occurrence: FR)
  Receive Date: 20250103
  Receipt Date: 20250131
  Transmission Date: 20250409
  Serious: Yes (Hospitalization, Other)
  Sender: AUROBINDO
  Company Number: FR-AFSSAPS-PC2024001074

PATIENT
  Age: 79 Year
  Sex: Female
  Weight: 62.8 kg

DRUGS (1)
  1. CAPECITABINE [Suspect]
     Active Substance: CAPECITABINE
     Indication: Breast cancer metastatic
     Dosage: 4.5 DOSAGE FORM, TWO TIMES A DAY (2150 MG MATIN ET SOIR)
     Route: 048
     Dates: start: 20241014, end: 20241125

REACTIONS (4)
  - Oesophageal injury [Recovering/Resolving]
  - Oesophageal ulcer [Recovering/Resolving]
  - Enterocolitis [Recovering/Resolving]
  - Diarrhoea [Recovering/Resolving]

NARRATIVE: CASE EVENT DATE: 20241120
